FAERS Safety Report 5296369-9 (Version None)
Quarter: 2007Q2

REPORT INFORMATION
  Report Type: 
  Country: None (occurrence: None)
  Receive Date: 20070413
  Receipt Date: 20070403
  Transmission Date: 20071010
  Serious: Yes (Other)
  Sender: FDA-Public Use
  Company Number: JP-ROCHE-485390

PATIENT
  Age: 28 Year
  Sex: Female
  Weight: 54 kg

DRUGS (5)
  1. TAMIFLU [Suspect]
     Indication: INFLUENZA
     Route: 048
     Dates: start: 20070220, end: 20070220
  2. TAMIFLU [Suspect]
     Route: 048
     Dates: start: 20070221, end: 20070223
  3. DASEN [Concomitant]
     Route: 048
     Dates: start: 20070220, end: 20070223
  4. CALONAL [Concomitant]
     Dosage: TAKEN AS NEEDED. UNCERTAIN SINGLE USE.
     Route: 048
  5. AZUNOL [Concomitant]
     Dosage: ROUTE REPORTED AS OROPHARINGEAL. DOSE FORM REPORTED AS GARGLE.
     Route: 050

REACTIONS (4)
  - AFFECTIVE DISORDER [None]
  - INSOMNIA [None]
  - MOOD ALTERED [None]
  - THIRST [None]
